FAERS Safety Report 4588868-X (Version None)
Quarter: 2005Q1

REPORT INFORMATION
  Report Type: 
  Country: None (occurrence: None)
  Receive Date: 20050222
  Receipt Date: 20050209
  Transmission Date: 20050727
  Serious: Yes (Hospitalization)
  Sender: FDA-Public Use
  Company Number: AU-GLAXOSMITHKLINE-B0371935A

PATIENT
  Sex: Female

DRUGS (7)
  1. ZYBAN [Suspect]
     Dates: start: 20050201
  2. VENTOLIN [Concomitant]
  3. SERETIDE [Concomitant]
  4. ATROVENT [Concomitant]
  5. ACIMAX [Concomitant]
  6. ZANIDIP [Concomitant]
  7. LOSEC [Concomitant]

REACTIONS (5)
  - BLOOD PRESSURE DECREASED [None]
  - DIFFICULTY IN WALKING [None]
  - HYPERTENSION [None]
  - LUNG INFECTION [None]
  - TREMOR [None]
